APPROVED DRUG PRODUCT: DUOCAINE
Active Ingredient: BUPIVACAINE HYDROCHLORIDE; LIDOCAINE HYDROCHLORIDE
Strength: EQ 0.375% (37.5MG/10ML);EQ 1% (100MG/10ML)
Dosage Form/Route: INJECTABLE;INJECTION
Application: N021496 | Product #001
Applicant: AMPHASTAR PHARMACEUTICALS INC
Approved: May 23, 2003 | RLD: No | RS: No | Type: DISCN